FAERS Safety Report 7528797-2 (Version None)
Quarter: 2011Q2

REPORT INFORMATION
  Report Type: 
  Country: None (occurrence: None)
  Receive Date: 20110607
  Receipt Date: 20110120
  Transmission Date: 20111010
  Serious: No
  Sender: FDA-Public Use
  Company Number: US-ASTRAZENECA-2011SE05986

PATIENT
  Age: 76 Year
  Sex: Male

DRUGS (1)
  1. PRILOSEC OTC [Suspect]
     Route: 048
     Dates: start: 20110120, end: 20110120

REACTIONS (3)
  - INJURY [None]
  - LACERATION [None]
  - HAEMORRHAGE [None]
